FAERS Safety Report 5719874-7 (Version None)
Quarter: 2008Q2

REPORT INFORMATION
  Report Type: 
  Country: None (occurrence: None)
  Receive Date: 20080428
  Receipt Date: 20080416
  Transmission Date: 20081010
  Serious: Yes (Hospitalization)
  Sender: FDA-Public Use
  Company Number: US-ROCHE-547315

PATIENT
  Sex: Female

DRUGS (4)
  1. PEG-INTERFERON A-2A (RO 25-8310) [Suspect]
     Dosage: FORMULATION: VIAL
     Route: 065
     Dates: start: 20071109, end: 20071228
  2. PEG-INTERFERON A-2A (RO 25-8310) [Suspect]
     Dosage: FORMULATION: VIAL
     Route: 065
     Dates: start: 20080108, end: 20080308
  3. RIBASPHERE [Suspect]
     Route: 065
     Dates: start: 20071111, end: 20071228
  4. RIBASPHERE [Suspect]
     Route: 065
     Dates: start: 20080108, end: 20080308

REACTIONS (3)
  - PERICARDIAL EFFUSION [None]
  - STAPHYLOCOCCAL IDENTIFICATION TEST POSITIVE [None]
  - VIRAL PERICARDITIS [None]
